FAERS Safety Report 17526065 (Version 1)
Quarter: 2020Q1

REPORT INFORMATION
  Report Type: Spontaneous
  Country: US (occurrence: US)
  Receive Date: 20200303
  Receipt Date: 20200303
  Transmission Date: 20200409
  Serious: Yes (Death)
  Sender: FDA-Public Use
  Company Number: None

PATIENT
  Age: 79 Year
  Sex: Male

DRUGS (13)
  1. ASPIRIN. [Concomitant]
     Active Substance: ASPIRIN
  2. TOPROL XL [Concomitant]
     Active Substance: METOPROLOL SUCCINATE
  3. ELIQUIS [Concomitant]
     Active Substance: APIXABAN
  4. NU-IRON [Concomitant]
     Active Substance: FERRIC POLYSACCHARIDE COMPLEX
  5. LANTUS [Concomitant]
     Active Substance: INSULIN GLARGINE
  6. TACROLIMUS 0.5MG [Suspect]
     Active Substance: TACROLIMUS
     Indication: RENAL TRANSPLANT
     Dosage: ?          OTHER FREQUENCY:EVERYNIGHT;?
     Route: 048
     Dates: start: 201808, end: 20200128
  7. CLONIDINE. [Concomitant]
     Active Substance: CLONIDINE
  8. HUMALOG [Concomitant]
     Active Substance: INSULIN LISPRO
  9. PROZAC [Concomitant]
     Active Substance: FLUOXETINE HYDROCHLORIDE
  10. NEXIUM [Concomitant]
     Active Substance: ESOMEPRAZOLE MAGNESIUM
  11. PREDNISONE. [Concomitant]
     Active Substance: PREDNISONE
  12. TOTAL B/C [Concomitant]
  13. TACROLIMUS 1 MG [Suspect]
     Active Substance: TACROLIMUS
     Dosage: ?          OTHER FREQUENCY:MORNING ;?
     Dates: start: 201808, end: 20200128

REACTIONS (1)
  - Death [None]

NARRATIVE: CASE EVENT DATE: 20200128
